FAERS Safety Report 6560881-2 (Version None)
Quarter: 2010Q1

REPORT INFORMATION
  Report Type: 
  Country: None (occurrence: None)
  Receive Date: 20100129
  Receipt Date: 20090925
  Transmission Date: 20100710
  Serious: No
  Sender: FDA-Public Use
  Company Number: US-ABBOTT-09P-163-0599505-00

PATIENT
  Sex: Male
  Weight: 73.548 kg

DRUGS (3)
  1. HUMIRA [Suspect]
     Indication: GASTROENTERITIS EOSINOPHILIC
     Route: 058
     Dates: start: 20090801
  2. ALLEGRA [Concomitant]
     Indication: SEASONAL ALLERGY
     Route: 048
  3. FAMOTIDINE [Concomitant]
     Indication: DYSPEPSIA
     Dosage: UNSURE OF STRENGTH, OTC
     Route: 048

REACTIONS (1)
  - DRUG INEFFECTIVE [None]
